FAERS Safety Report 9369981 (Version 1)
Quarter: 2013Q2

REPORT INFORMATION
  Report Type: Spontaneous
  Country: US (occurrence: US)
  Receive Date: 20130626
  Receipt Date: 20130626
  Transmission Date: 20140414
  Serious: No
  Sender: FDA-Public Use
  Company Number: US-009507513-1306USA010957

PATIENT
  Age: 36 Year
  Sex: Female

DRUGS (1)
  1. IMPLANON [Suspect]
     Indication: CONTRACEPTION
     Dosage: UNK
     Route: 059
     Dates: start: 20110928

REACTIONS (4)
  - Amenorrhoea [Unknown]
  - Application site swelling [Unknown]
  - Implant site induration [Unknown]
  - Local swelling [Unknown]
